FAERS Safety Report 6632975-4 (Version None)
Quarter: 2010Q1

REPORT INFORMATION
  Report Type: 
  Country: None (occurrence: None)
  Receive Date: 20100312
  Receipt Date: 20090416
  Transmission Date: 20100710
  Serious: No
  Sender: FDA-Public Use
  Company Number: US-ABBOTT-09P-163-0568872-00

PATIENT
  Sex: Male
  Weight: 68.1 kg

DRUGS (2)
  1. ERYTHROMYCIN ETHYLSUCCINATE [Suspect]
     Indication: GINGIVAL INFECTION
     Dates: start: 20090413
  2. UNKNOWN NAME OF MEDCIATION FOR GASTRIC REFLUX [Concomitant]
     Indication: GASTROOESOPHAGEAL REFLUX DISEASE

REACTIONS (1)
  - GASTROOESOPHAGEAL REFLUX DISEASE [None]
